FAERS Safety Report 11383677 (Version 2)
Quarter: 2016Q1

REPORT INFORMATION
  Report Type: Spontaneous
  Country: US (occurrence: US)
  Receive Date: 20150814
  Receipt Date: 20160106
  Transmission Date: 20160525
  Serious: Yes (Other)
  Sender: FDA-Public Use
  Company Number: US-ALLERGAN-1515844US

PATIENT
  Age: 74 Year
  Sex: Female

DRUGS (1)
  1. LUMIGAN [Suspect]
     Active Substance: BIMATOPROST
     Indication: EYE DISORDER
     Dosage: UNK, QHS
     Route: 047
     Dates: end: 2015

REACTIONS (3)
  - Trabeculectomy [Recovered/Resolved]
  - Vision blurred [Recovered/Resolved]
  - Cataract [Recovered/Resolved]

NARRATIVE: CASE EVENT DATE: 2013
